FAERS Safety Report 10052295 (Version 1)
Quarter: 2014Q2

REPORT INFORMATION
  Report Type: Spontaneous
  Country: US (occurrence: None)
  Receive Date: 20140401
  Receipt Date: 20140401
  Transmission Date: 20141212
  Serious: No
  Sender: FDA-Public Use
  Company Number: None

PATIENT
  Age: 76 Year
  Sex: Male

DRUGS (1)
  1. JAKAFI [Suspect]
     Indication: MYELOFIBROSIS
     Route: 048
     Dates: start: 20140311, end: 20140321

REACTIONS (7)
  - Diarrhoea [None]
  - Headache [None]
  - Pain [None]
  - Pyrexia [None]
  - Decreased appetite [None]
  - Fatigue [None]
  - Nausea [None]
